FAERS Safety Report 20795759 (Version 3)
Quarter: 2023Q1

REPORT INFORMATION
  Report Type: Spontaneous
  Country: JP (occurrence: JP)
  Receive Date: 20220506
  Receipt Date: 20230201
  Transmission Date: 20230417
  Serious: Yes (Hospitalization)
  Sender: FDA-Public Use
  Company Number: JP-MTPC-MTPC2021-0031120

PATIENT
  Age: 42 Year
  Sex: Female

DRUGS (8)
  1. REMICADE [Suspect]
     Active Substance: INFLIXIMAB
     Indication: Colitis ulcerative
     Dosage: 300 MILLIGRAM, QD
     Route: 041
     Dates: start: 20211027
  2. REMICADE [Suspect]
     Active Substance: INFLIXIMAB
     Dosage: 300 MILLIGRAM, QD
     Route: 041
     Dates: start: 20211204, end: 20211204
  3. PENTASA [Concomitant]
     Active Substance: MESALAMINE
     Indication: Colitis ulcerative
     Dosage: 4000 MILLIGRAM, QD
     Route: 048
     Dates: start: 20211018
  4. SAIREITO [ALISMA PLANTAGO-AQUATICA SUBSP. ORIENTALE TUBER;ATRACTYLODES [Concomitant]
     Indication: Colitis ulcerative
     Dosage: 9 GRAM, QD
     Route: 048
     Dates: start: 20211018, end: 20211227
  5. MIYA-BM [Concomitant]
     Active Substance: CLOSTRIDIUM BUTYRICUM SPORES STRAIN M-55
     Indication: Colitis ulcerative
     Dosage: 6 DOSAGE FORM, QD
     Route: 048
     Dates: start: 20211018
  6. MERCAPTOPURINE [Concomitant]
     Active Substance: MERCAPTOPURINE
     Indication: Colitis ulcerative
     Dosage: 10 MILLIGRAM, QD
     Route: 048
     Dates: start: 20211204
  7. CYMBALTA [Concomitant]
     Active Substance: DULOXETINE HYDROCHLORIDE
     Indication: Depression
     Dosage: 3 DOSAGE FORM, QD
     Route: 048
  8. TRIAZOLAM [Concomitant]
     Active Substance: TRIAZOLAM
     Indication: Depression
     Dosage: 0.5 MILLIGRAM, QD
     Route: 048

REACTIONS (3)
  - Ascites [Recovered/Resolved]
  - Generalised oedema [Recovered/Resolved]
  - Pleural effusion [Recovered/Resolved]

NARRATIVE: CASE EVENT DATE: 20211204
